FAERS Safety Report 8618450-6 (Version None)
Quarter: 2012Q3

REPORT INFORMATION
  Report Type: 
  Country: None (occurrence: None)
  Receive Date: 20120824
  Receipt Date: 20120816
  Transmission Date: 20120928
  Serious: Yes (Other)
  Sender: FDA-Public Use
  Company Number: FR-GE HEALTHCARE MEDICAL DIAGNOSTICS-OMPQ-NO-1208S-0835

PATIENT
  Age: 4 Week
  Sex: Female

DRUGS (1)
  1. OMNIPAQUE 140 [Suspect]
     Indication: PULMONARY SEQUESTRATION
     Dosage: DOSE NOT REPORTED
     Route: 042
     Dates: start: 20120710, end: 20120710

REACTIONS (2)
  - INJECTION SITE EXTRAVASATION [None]
  - LOCALISED OEDEMA [None]
